FAERS Safety Report 17160724 (Version 1)
Quarter: 2019Q4

REPORT INFORMATION
  Report Type: Spontaneous
  Country: US (occurrence: US)
  Receive Date: 20191216
  Receipt Date: 20191216
  Transmission Date: 20200122
  Serious: Yes (Death)
  Sender: FDA-Public Use
  Company Number: US-AMERICAN REGENT INC-2019002821

PATIENT
  Age: 40 Year
  Sex: Female

DRUGS (3)
  1. ALPRAZOLAM. [Suspect]
     Active Substance: ALPRAZOLAM
     Indication: PRODUCT USED FOR UNKNOWN INDICATION
     Dosage: UNK
     Route: 065
     Dates: start: 2018, end: 2018
  2. PROMETHAZINE [Suspect]
     Active Substance: PROMETHAZINE HYDROCHLORIDE
     Indication: PRODUCT USED FOR UNKNOWN INDICATION
     Dosage: UNK
     Route: 065
     Dates: start: 2018, end: 2018
  3. OXYCODONE [Suspect]
     Active Substance: OXYCODONE
     Indication: PRODUCT USED FOR UNKNOWN INDICATION
     Dosage: UNK
     Route: 065
     Dates: start: 2018, end: 2018

REACTIONS (18)
  - Acute respiratory distress syndrome [Fatal]
  - Metabolic acidosis [Fatal]
  - Acute lung injury [Fatal]
  - Anion gap [Fatal]
  - Intestinal ischaemia [Fatal]
  - Toxicity to various agents [Fatal]
  - Gastrointestinal haemorrhage [Fatal]
  - Thrombocytopenia [Fatal]
  - Acute kidney injury [Fatal]
  - Ill-defined disorder [Fatal]
  - Seizure [Fatal]
  - Rhabdomyolysis [Fatal]
  - Hypotension [Fatal]
  - Depressed level of consciousness [Fatal]
  - Coma [Fatal]
  - Hepatotoxicity [Fatal]
  - Tachycardia [Fatal]
  - Delirium [Fatal]

NARRATIVE: CASE EVENT DATE: 2018
